FAERS Safety Report 14675367 (Version 1)
Quarter: 2018Q1

REPORT INFORMATION
  Report Type: Report from Study
  Country: US (occurrence: US)
  Receive Date: 20180323
  Receipt Date: 20180323
  Transmission Date: 20180509
  Serious: Yes (Hospitalization)
  Sender: FDA-Public Use
  Company Number: US-GILEAD-2018-0328093

PATIENT
  Age: 47 Year
  Sex: Female

DRUGS (4)
  1. AZTREONAM LYSINE [Suspect]
     Active Substance: AZTREONAM LYSINE
     Indication: CYSTIC FIBROSIS
     Dosage: 75 MG, TID
     Route: 055
     Dates: start: 20140103
  2. PULMOZYME [Concomitant]
     Active Substance: DORNASE ALFA
  3. AZTREONAM LYSINE [Suspect]
     Active Substance: AZTREONAM LYSINE
     Dosage: 75 MG, TID
     Route: 055
  4. LEVALBUTEROL                       /01419301/ [Concomitant]
     Active Substance: LEVALBUTEROL

REACTIONS (3)
  - Weight increased [Unknown]
  - Intentional dose omission [Recovered/Resolved]
  - Malaise [Unknown]
